FAERS Safety Report 9775380 (Version 1)
Quarter: 2013Q4

REPORT INFORMATION
  Report Type: Spontaneous
  Country: ES (occurrence: ES)
  Receive Date: 20131220
  Receipt Date: 20131220
  Transmission Date: 20140711
  Serious: Yes (Life-Threatening, Hospitalization)
  Sender: FDA-Public Use
  Company Number: ES-SA-2013SA130119

PATIENT
  Age: 75 Year
  Sex: Male

DRUGS (10)
  1. CLEXANE [Suspect]
     Indication: VENTRICULAR TACHYCARDIA
     Dosage: 70MG
     Route: 058
     Dates: start: 20130315, end: 20130320
  2. ACETYLSALICYLIC ACID [Interacting]
     Indication: PRODUCT USED FOR UNKNOWN INDICATION
     Dosage: 1CP
     Route: 048
     Dates: start: 20130315
  3. CLOPIDOGREL BISULFATE [Interacting]
     Indication: PRODUCT USED FOR UNKNOWN INDICATION
     Dosage: 1CP
     Route: 048
     Dates: start: 20130315
  4. ALLOPURINOL [Concomitant]
     Dosage: 1CP
     Route: 048
     Dates: start: 2011
  5. CARVEDILOL [Concomitant]
     Indication: VENTRICULAR TACHYCARDIA
     Dosage: 1-0-1
     Route: 048
     Dates: start: 20130315
  6. CEFTRIAXONE [Concomitant]
     Dosage: 2GR
     Route: 042
     Dates: start: 20130315
  7. ENALAPRIL [Concomitant]
     Indication: HYPERTENSION
     Dosage: 1-0-0
     Route: 048
     Dates: start: 2003
  8. INSULIN GLARGINE [Concomitant]
     Indication: TYPE 2 DIABETES MELLITUS
     Dosage: 12U DE
     Route: 058
     Dates: start: 20130315
  9. PANTOPRAZOLE [Concomitant]
     Indication: PROPHYLAXIS AGAINST GASTROINTESTINAL ULCER
     Dosage: 1CP
     Route: 048
     Dates: start: 20130315
  10. PARACETAMOL [Concomitant]
     Indication: PAIN
     Dosage: 1GR/8H
     Route: 042
     Dates: start: 20130315

REACTIONS (4)
  - Hypovolaemic shock [Recovered/Resolved]
  - Drug interaction [Unknown]
  - Cardiac arrest [Recovered/Resolved]
  - Retroperitoneal haematoma [Recovered/Resolved]
